FAERS Safety Report 12556198 (Version 1)
Quarter: 2016Q3

REPORT INFORMATION
  Report Type: Spontaneous
  Country: US (occurrence: None)
  Receive Date: 20160713
  Receipt Date: 20160713
  Transmission Date: 20161109
  Serious: No
  Sender: FDA-Public Use
  Company Number: None

PATIENT
  Age: 70 Year
  Sex: Female

DRUGS (8)
  1. ASPIRIN. [Concomitant]
     Active Substance: ASPIRIN
  2. PROLIA [Suspect]
     Active Substance: DENOSUMAB
     Indication: MULTIPLE FRACTURES
     Dosage: INJECTION BACK OF RIGHT UPPER ARM!
     Dates: start: 20160318
  3. VITAMIN D [Concomitant]
     Active Substance: CHOLECALCIFEROL
  4. COZAAR [Concomitant]
     Active Substance: LOSARTAN POTASSIUM
  5. CALCIUM [Concomitant]
     Active Substance: CALCIUM
  6. OMEPROZOLE [Concomitant]
     Active Substance: OMEPRAZOLE
  7. PROLIA [Suspect]
     Active Substance: DENOSUMAB
     Indication: OSTEOPOROSIS
     Dosage: INJECTION BACK OF RIGHT UPPER ARM!
     Dates: start: 20160318
  8. VITAMINS [Concomitant]
     Active Substance: VITAMINS

REACTIONS (2)
  - Muscle spasms [None]
  - Musculoskeletal pain [None]

NARRATIVE: CASE EVENT DATE: 20160318
